FAERS Safety Report 12139988 (Version 1)
Quarter: 2016Q1

REPORT INFORMATION
  Report Type: Spontaneous
  Country: KR (occurrence: KR)
  Receive Date: 20160303
  Receipt Date: 20160303
  Transmission Date: 20160526
  Serious: Yes (Death)
  Sender: FDA-Public Use
  Company Number: KR-ROCHE-1544270

PATIENT
  Age: 55 Year
  Sex: Female

DRUGS (2)
  1. IRINOTECAN [Suspect]
     Active Substance: IRINOTECAN
     Indication: GLIOBLASTOMA
     Route: 065
     Dates: start: 201311
  2. AVASTIN [Suspect]
     Active Substance: BEVACIZUMAB
     Indication: GLIOBLASTOMA
     Route: 042
     Dates: start: 201311

REACTIONS (4)
  - Hypertension [Unknown]
  - Depression [Unknown]
  - Seizure [Unknown]
  - Death [Fatal]
